FAERS Safety Report 22346161 (Version 1)
Quarter: 2023Q2

REPORT INFORMATION
  Report Type: Spontaneous
  Country: US (occurrence: None)
  Receive Date: 20230519
  Receipt Date: 20230519
  Transmission Date: 20230721
  Serious: Yes (Hospitalization)
  Sender: FDA-Public Use
  Company Number: None

PATIENT
  Sex: Female

DRUGS (2)
  1. SPRAVATO [Suspect]
     Active Substance: ESKETAMINE
     Dosage: ADMINISTER 84 MG INTRANASALLYONCE WEEKLY?
     Route: 045
     Dates: start: 20220831
  2. KETOROLAC [Concomitant]

REACTIONS (2)
  - Spinal operation [None]
  - Malaise [None]
